FAERS Safety Report 21274612 (Version 1)
Quarter: 2022Q3

REPORT INFORMATION
  Report Type: Report from Study
  Country: US (occurrence: US)
  Receive Date: 20220831
  Receipt Date: 20220831
  Transmission Date: 20221027
  Serious: Yes (Other)
  Sender: FDA-Public Use
  Company Number: US-TAKEDA-US202019111

PATIENT
  Sex: Female

DRUGS (2)
  1. HUMAN IMMUNOGLOBULIN G [Suspect]
     Active Substance: HUMAN IMMUNOGLOBULIN G
     Indication: Primary immunodeficiency syndrome
     Dosage: UNK
     Route: 065
  2. HUMAN IMMUNOGLOBULIN G [Suspect]
     Active Substance: HUMAN IMMUNOGLOBULIN G
     Indication: Seasonal affective disorder
     Dosage: UNK
     Route: 042

REACTIONS (8)
  - Catheter site thrombosis [Recovered/Resolved]
  - Oesophageal disorder [Unknown]
  - Headache [Unknown]
  - Post lumbar puncture syndrome [Unknown]
  - Pyrexia [Unknown]
  - Pain [Unknown]
  - Nervous system disorder [Unknown]
  - Arthroscopy [Recovering/Resolving]
